FAERS Safety Report 21657175 (Version 2)
Quarter: 2023Q4

REPORT INFORMATION
  Report Type: Spontaneous
  Country: US (occurrence: US)
  Receive Date: 20221129
  Receipt Date: 20231018
  Transmission Date: 20240110
  Serious: No
  Sender: FDA-Public Use
  Company Number: US-SA-SAC20221128000876

PATIENT
  Sex: Female
  Weight: 66 kg

DRUGS (1)
  1. DUPIXENT [Suspect]
     Active Substance: DUPILUMAB
     Dosage: 300 MG FREQUENCY: OTHER
     Route: 058

REACTIONS (2)
  - Weight increased [Unknown]
  - Maternal exposure during pregnancy [Unknown]
